FAERS Safety Report 8197891-8 (Version None)
Quarter: 2012Q1

REPORT INFORMATION
  Report Type: 
  Country: None (occurrence: None)
  Receive Date: 20120309
  Receipt Date: 20120302
  Transmission Date: 20120608
  Serious: Yes (Other)
  Sender: FDA-Public Use
  Company Number: US-BRACCO-005559

PATIENT
  Sex: Female
  Weight: 58.05 kg

DRUGS (86)
  1. MAGNEVIST [Suspect]
     Indication: MULTIPLE MYELOMA
     Route: 042
     Dates: start: 20061211
  2. CALCITRIOL [Concomitant]
  3. PAXIL [Concomitant]
  4. THALOMID [Concomitant]
  5. ATENOLOL [Concomitant]
  6. EPOGEN [Concomitant]
  7. MAGNEVIST [Suspect]
     Indication: RENAL VEIN THROMBOSIS
     Route: 042
     Dates: start: 20010103, end: 20010103
  8. MAGNEVIST [Suspect]
     Route: 042
     Dates: start: 20001221, end: 20001221
  9. CONTRAST MEDIA [Suspect]
     Indication: KIDNEY ANASTOMOSIS
     Dates: start: 20020423, end: 20020423
  10. PREDNISONE [Concomitant]
  11. OMNISCAN [Suspect]
     Indication: MULTIPLE MYELOMA
     Dates: start: 20010305, end: 20010305
  12. OMNISCAN [Suspect]
     Indication: HAEMORRHAGE INTRACRANIAL
     Route: 042
     Dates: start: 19970718, end: 19970718
  13. MYCOPHENOLATE MOFETIL (CELLCEPT) [Concomitant]
  14. RENAPHRO [Concomitant]
  15. SENOKOT [Concomitant]
  16. ACYCLOVIR [Concomitant]
  17. OXYCODONE HCL [Concomitant]
  18. MAGNEVIST [Suspect]
     Indication: NUCLEAR MAGNETIC RESONANCE IMAGING
     Route: 042
     Dates: start: 20020318, end: 20020318
  19. MAGNEVIST [Suspect]
     Route: 042
     Dates: start: 20000830, end: 20000830
  20. MULTIHANCE [Suspect]
     Indication: MUSCULAR WEAKNESS
     Route: 042
     Dates: start: 20080331, end: 20080331
  21. CONTRAST MEDIA [Suspect]
     Indication: HAEMORRHAGE INTRACRANIAL
     Dates: start: 19990615, end: 19990615
  22. CONTRAST MEDIA [Suspect]
     Indication: RENAL TRANSPLANT
     Dates: start: 20020423, end: 20020423
  23. COUMADIN [Concomitant]
     Dates: start: 19990101
  24. ZETIA [Concomitant]
  25. DILANTIN [Concomitant]
  26. LASIX [Concomitant]
  27. ATIVAN [Concomitant]
  28. OMNISCAN [Suspect]
     Indication: DISEASE PROGRESSION
     Dates: start: 20011030, end: 20011030
  29. ALUMINIUM OXIDE [Concomitant]
  30. NEPHROVITE [Concomitant]
  31. TIZANIDINE HCL [Concomitant]
  32. LOPRESSOR [Concomitant]
  33. GABAPENTIN [Concomitant]
  34. PROCRIT [Concomitant]
  35. FAMVIR [Concomitant]
  36. MAGNEVIST [Suspect]
     Indication: GAIT DISTURBANCE
     Dosage: ^14 ML AND 16 ML^
     Route: 042
     Dates: start: 20051215, end: 20051215
  37. MULTIHANCE [Suspect]
     Indication: NUCLEAR MAGNETIC RESONANCE IMAGING BRAIN
     Route: 042
     Dates: start: 20080111, end: 20080111
  38. MULTIHANCE [Suspect]
     Indication: PAIN
     Dosage: ^17^
     Route: 042
     Dates: start: 20080325, end: 20080325
  39. CONTRAST MEDIA [Suspect]
     Indication: ARTERIOGRAM RENAL
  40. ZOFRAN [Concomitant]
  41. FOSAMAX [Concomitant]
  42. MYCELEX [Concomitant]
  43. ZOLOFT [Concomitant]
  44. PROHANCE [Suspect]
     Indication: NUCLEAR MAGNETIC RESONANCE IMAGING
  45. IMMUNOSUPPRESSANTS [Concomitant]
  46. PROCRIT [Concomitant]
     Dates: start: 19990101
  47. CONTRAST MEDIA [Suspect]
     Indication: MULTIPLE MYELOMA
     Dates: start: 19990915, end: 19990915
  48. RANITIDINE [Concomitant]
  49. CLARITIN [Concomitant]
  50. CHLORTHALIDONE [Concomitant]
  51. MARINOL [Concomitant]
  52. MAGNEVIST [Suspect]
     Indication: BACK PAIN
     Route: 042
     Dates: start: 20021230, end: 20021230
  53. NEURONTIN [Concomitant]
  54. AMITRIPTYLINE HCL [Concomitant]
  55. OMNISCAN [Suspect]
     Indication: NUCLEAR MAGNETIC RESONANCE IMAGING BRAIN
     Dates: start: 19980601, end: 19980601
  56. OMNISCAN [Suspect]
     Indication: NUCLEAR MAGNETIC RESONANCE IMAGING
     Dates: start: 20011108, end: 20011108
  57. PRILOSEC [Concomitant]
  58. OXYCODONE HCL AND ACETAMINOPHEN [Concomitant]
  59. FUROSEMIDE [Concomitant]
  60. IMMUNE GLOBULIN NOS [Concomitant]
  61. KLONOPIN [Concomitant]
  62. PHOSLO [Concomitant]
  63. SODIUM BICARBONATE [Concomitant]
  64. MAGNEVIST [Suspect]
     Indication: HEADACHE
     Route: 042
     Dates: start: 20020326
  65. MAGNEVIST [Suspect]
     Dates: start: 20030813, end: 20030813
  66. MAGNEVIST [Suspect]
     Route: 042
     Dates: start: 20050629, end: 20050629
  67. MAGNEVIST [Suspect]
     Route: 042
     Dates: start: 20041203, end: 20041203
  68. OPTIMARK [Suspect]
     Indication: NUCLEAR MAGNETIC RESONANCE IMAGING
  69. MULTIHANCE [Suspect]
     Indication: NUCLEAR MAGNETIC RESONANCE IMAGING
     Route: 042
     Dates: start: 20080103, end: 20080103
  70. CONTRAST MEDIA [Suspect]
     Indication: NUCLEAR MAGNETIC RESONANCE IMAGING
     Dates: start: 20020423, end: 20020423
  71. SYNTHROID [Concomitant]
  72. OMNISCAN [Suspect]
     Indication: NUCLEAR MAGNETIC RESONANCE IMAGING ABDOMINAL
     Dates: start: 20000323, end: 20000323
  73. NEPHROCAPS [Concomitant]
     Dates: start: 20090101
  74. RENA-VITE [Concomitant]
  75. IMITREX [Concomitant]
  76. ACETAMINOPHEN AND OXYCODONE HCL [Concomitant]
  77. MAGNEVIST [Suspect]
     Indication: RENAL FAILURE
     Route: 042
     Dates: start: 20040102, end: 20040102
  78. MAGNEVIST [Suspect]
     Indication: INTERVERTEBRAL DISC PROTRUSION
     Dates: start: 20020910, end: 20020910
  79. MULTIHANCE [Suspect]
     Indication: MULTIPLE MYELOMA
     Dates: start: 20090103, end: 20090103
  80. METOPROLOL SUCCINATE [Concomitant]
     Dates: start: 20090101
  81. CONTRAST MEDIA [Suspect]
     Indication: ANGIOGRAM
     Dates: start: 20000323, end: 20000323
  82. RENAGEL [Concomitant]
     Dates: start: 19990101
  83. OXYCONTIN [Concomitant]
  84. LIPITOR [Concomitant]
  85. PROGRAF [Concomitant]
  86. ROCALTROL [Concomitant]

REACTIONS (1)
  - NEPHROGENIC SYSTEMIC FIBROSIS [None]
